FAERS Safety Report 8632486 (Version 2)
Quarter: 2013Q1

REPORT INFORMATION
  Report Type: Spontaneous
  Country: US (occurrence: US)
  Receive Date: 20120625
  Receipt Date: 20130328
  Transmission Date: 20140127
  Serious: Yes (Hospitalization)
  Sender: FDA-Public Use
  Company Number: US-BAYER-2012-061106

PATIENT
  Age: 39 Year
  Sex: Female
  Weight: 204.8 kg

DRUGS (21)
  1. YASMIN [Suspect]
     Indication: ACNE
  2. YAZ [Suspect]
     Indication: ACNE
  3. OCELLA [Suspect]
     Indication: ACNE
  4. TRIMOX [AMOXICILLIN TRIHYDRATE] [Concomitant]
     Dosage: 500 MG, TID
     Route: 048
     Dates: start: 20031212
  5. ZITHROMAX [Concomitant]
     Dosage: 250 MG TABLET, ONE DAILY FOR 4 DAYS
     Route: 048
     Dates: start: 20040106
  6. COMBIVENT [Concomitant]
     Dosage: USE 2 PUFFS EVERY FOUR HOURS AS NEEDED
     Dates: start: 20040106
  7. PREDNISONE [Concomitant]
     Dosage: 20 MG TABLETS TAKE 2 TABLETS EVERY DAY FOR 4 DAYS
     Dates: start: 20040106
  8. PREDNISONE [Concomitant]
     Dosage: 20 MG TABLETS, 1 TAB 3 TIMES A DAY FOR 3 DAYS, 1 TAB 2 TIMES A DAY FOR 3 DAYS, 1 TAB DAILY FOR 3 DAY
     Dates: start: 20040123
  9. PREDNISONE [Concomitant]
     Dosage: 5 MG TABLET, START AFTER FINISHING 20 MG PREDNISONE, TAKE 1 TABLET DAILY FOR 2 DAYS
     Dates: start: 20040123
  10. ALPRAZOLAM [Concomitant]
     Indication: ANXIETY
     Dosage: 0.25 MG TABLET, TAKE ONE THREE TIMES A DAY AS NEEDED
     Dates: start: 20040109
  11. ALPRAZOLAM [Concomitant]
     Indication: ANXIETY
     Dosage: 0.5 MG TABLET, TAKE ? TO 1 TABLET EVERY SIX HOURS AS NEEDED
     Dates: start: 20040123
  12. VANTIN [Concomitant]
     Dosage: 200 MG TABLET, TAKE 2 TABLETS TWO TIMES A DAY FOR 10 DAYS
     Dates: start: 20040109
  13. XOPENEX [Concomitant]
     Dosage: 0.63 MG/3 ML SOLUTION, USE 1 VIAL WITH NEBULIZER EVERY 8 HOURS
     Dates: start: 20040123
  14. FUROSEMIDE [Concomitant]
     Dosage: 40 MG TABLET, TAKE ONE TABLET DAILY
     Dates: start: 20040123
  15. IPRATROPIUM BROMIDE [Concomitant]
     Dosage: 0.02% SOLUTION, USE WITH NEBULIZER EVERY EIGHT HOURS
     Dates: start: 20040123
  16. POTASSIUM CHLORIDE [Concomitant]
     Dosage: 20 MEQ TAB (INTERPRETED AS TABLET), TAKE ONE TABLET DAILY
     Dates: start: 20040123
  17. PULMICORT [Concomitant]
     Dosage: 0.5 MG/2ML USE WITH NEBULIZER EVERY TWELVE HOURS [
     Dates: start: 20040123
  18. ADVAIR [Concomitant]
     Dosage: UNK UNK, PRN
  19. MOTRIN [Concomitant]
  20. LASIX [Concomitant]
     Indication: HYPERTENSION
     Dosage: 20 MG, UNK
     Route: 048
  21. LISINOPRIL [Concomitant]
     Dosage: 20 MG, UNK

REACTIONS (4)
  - Injury [None]
  - Pulmonary embolism [None]
  - Pain [None]
  - Pain [None]
